FAERS Safety Report 7670079-2 (Version None)
Quarter: 2011Q3

REPORT INFORMATION
  Report Type: 
  Country: None (occurrence: None)
  Receive Date: 20110808
  Receipt Date: 20110804
  Transmission Date: 20111222
  Serious: No
  Sender: FDA-Public Use
  Company Number: US-PFIZER INC-2011178841

PATIENT
  Sex: Female
  Weight: 79.365 kg

DRUGS (10)
  1. BENAZEPRIL [Concomitant]
     Indication: HYPERTENSION
     Dosage: 40 MG, DAILY
  2. PRISTIQ [Concomitant]
     Indication: DEPRESSION
     Dosage: 50 MG, DAILY
     Dates: start: 20110301
  3. VITAMIN D [Concomitant]
     Indication: VITAMIN D DECREASED
     Dosage: 5000 MG, WEEKLY
  4. LIPITOR [Suspect]
     Indication: BLOOD CHOLESTEROL INCREASED
     Dosage: 40 MG, DAILY
     Dates: start: 20110701, end: 20110802
  5. METFORMIN [Concomitant]
     Indication: DIABETES MELLITUS
     Dosage: 1000 MG, 2X/DAY
  6. TRAZODONE [Concomitant]
     Indication: INSOMNIA
     Dosage: 25 MG, DAILY
     Dates: start: 20110401
  7. TRAZODONE [Concomitant]
     Indication: ANXIETY
  8. GLIPIZIDE [Concomitant]
     Indication: DIABETES MELLITUS
     Dosage: 10 MG, DAILY
     Dates: start: 20110201
  9. AMLODIPINE [Concomitant]
     Indication: HYPERTENSION
     Dosage: 20 MG, DAILY
     Dates: start: 20110201
  10. LOVAZA [Concomitant]
     Indication: BLOOD TRIGLYCERIDES INCREASED
     Dosage: 1 G, 2X/DAY
     Dates: start: 20110101

REACTIONS (2)
  - ONYCHALGIA [None]
  - PAIN [None]
